FAERS Safety Report 4871058-0 (Version None)
Quarter: 2005Q4

REPORT INFORMATION
  Report Type: 
  Country: None (occurrence: None)
  Receive Date: 20051229
  Receipt Date: 20051216
  Transmission Date: 20060501
  Serious: Yes (Life-Threatening, Hospitalization)
  Sender: FDA-Public Use
  Company Number: 6019308

PATIENT
  Age: 49 Year
  Sex: Female

DRUGS (4)
  1. BISOPROLOL FUMARATE [Suspect]
     Indication: HYPERTHYROIDISM
     Dosage: 5 MG (5 MG, 1 IN 1 D) ORAL
     Route: 048
     Dates: start: 20050416, end: 20050428
  2. LOXONIN (LOXOPROFEN SODIUM) [Concomitant]
  3. MERCAZOLE (THIAMAZOLE) [Concomitant]
  4. DIAZEPAM [Concomitant]

REACTIONS (7)
  - ARTERIOSPASM CORONARY [None]
  - CARDIO-RESPIRATORY ARREST [None]
  - CORONARY ARTERY STENOSIS [None]
  - DEPRESSED LEVEL OF CONSCIOUSNESS [None]
  - DIALYSIS [None]
  - MYOCARDIAL INFARCTION [None]
  - URINARY INCONTINENCE [None]
